FAERS Safety Report 9790849 (Version 1)
Quarter: 2013Q4

REPORT INFORMATION
  Report Type: Spontaneous
  Country: MX (occurrence: MX)
  Receive Date: 20131231
  Receipt Date: 20131231
  Transmission Date: 20140711
  Serious: Yes (Other)
  Sender: FDA-Public Use
  Company Number: MX-B.I. PHARMACEUTICALS,INC./RIDGEFIELD-2013-BI-43770MX

PATIENT
  Age: 88 Year
  Sex: Male

DRUGS (4)
  1. MICARDIS TABLETS (BLIND) [Suspect]
     Dosage: 80 MG
     Dates: start: 2011, end: 201310
  2. PRADAXAR [Suspect]
     Dosage: 300 MG
     Dates: start: 201310
  3. CHLORTHALIDONE [Concomitant]
  4. AMIODARONE [Concomitant]

REACTIONS (2)
  - Transient ischaemic attack [Recovered/Resolved with Sequelae]
  - Off label use [Unknown]
